FAERS Safety Report 8816739 (Version 1)
Quarter: 2012Q4

REPORT INFORMATION
  Report Type: Spontaneous
  Country: US (occurrence: None)
  Receive Date: 20121001
  Receipt Date: 20121001
  Transmission Date: 20130627
  Serious: Yes (Other)
  Sender: FDA-Public Use
  Company Number: 001360502A

PATIENT
  Sex: Female

DRUGS (1)
  1. MEANINGFUL BEAUTY CINDY CRAWFORD ANTIOXIDANT SPF 20 UVA/UVB [Suspect]
     Dosage: dermal
     Dates: start: 20120813, end: 20120831

REACTIONS (5)
  - Pruritus [None]
  - Rash [None]
  - Eye swelling [None]
  - Lip swelling [None]
  - Gingival swelling [None]
